FAERS Safety Report 8005690-2 (Version None)
Quarter: 2011Q4

REPORT INFORMATION
  Report Type: 
  Country: None (occurrence: None)
  Receive Date: 20111223
  Receipt Date: 20111213
  Transmission Date: 20120403
  Serious: Yes (Hospitalization)
  Sender: FDA-Public Use
  Company Number: CA-JNJFOC-20111208158

PATIENT
  Sex: Female
  Weight: 87 kg

DRUGS (3)
  1. REMICADE [Suspect]
     Indication: CROHN'S DISEASE
     Dosage: TO THE PRESENT
     Route: 042
     Dates: start: 20101001
  2. CYMBALTA [Concomitant]
  3. IMURAN [Concomitant]

REACTIONS (2)
  - GASTROINTESTINAL INFLAMMATION [None]
  - INTESTINAL RESECTION [None]
